FAERS Safety Report 13559519 (Version 1)
Quarter: 2017Q2

REPORT INFORMATION
  Report Type: Spontaneous
  Country: JP (occurrence: JP)
  Receive Date: 20170518
  Receipt Date: 20170518
  Transmission Date: 20170830
  Serious: Yes (Death, Hospitalization, Other)
  Sender: FDA-Public Use
  Company Number: JP-MYLANLABS-2017M1029847

PATIENT

DRUGS (2)
  1. FLUOROURACIL. [Concomitant]
     Active Substance: FLUOROURACIL
     Indication: BASOSQUAMOUS CARCINOMA
     Dosage: 800 MG/M2/DAY AS CONTINUOUS INFUSION
     Route: 050
  2. CISPLATIN. [Suspect]
     Active Substance: CISPLATIN
     Indication: BASOSQUAMOUS CARCINOMA
     Dosage: 80MG/M2 (ON FIRST DAY)
     Route: 065

REACTIONS (5)
  - Bone marrow failure [Unknown]
  - Multiple organ dysfunction syndrome [Fatal]
  - Hepatic function abnormal [Unknown]
  - Acute kidney injury [Unknown]
  - Hypoacusis [Unknown]
